FAERS Safety Report 17980057 (Version 2)
Quarter: 2025Q2

REPORT INFORMATION
  Report Type: Spontaneous
  Country: PT (occurrence: PT)
  Receive Date: 20200703
  Receipt Date: 20250618
  Transmission Date: 20250716
  Serious: Yes (Death, Hospitalization, Other)
  Sender: MYLAN
  Company Number: PT-EMA-DD-20200618-GONUGUNTLA_N1-120253

PATIENT
  Age: 66 Year
  Sex: Male

DRUGS (12)
  1. METFORMIN [Suspect]
     Active Substance: METFORMIN HYDROCHLORIDE
     Indication: Product used for unknown indication
     Dosage: 500 MILLIGRAM, QD
  2. METFORMIN [Suspect]
     Active Substance: METFORMIN HYDROCHLORIDE
     Dosage: 500 MILLIGRAM, QD
     Route: 065
  3. METFORMIN [Suspect]
     Active Substance: METFORMIN HYDROCHLORIDE
     Dosage: 500 MILLIGRAM, QD
     Route: 065
  4. METFORMIN [Suspect]
     Active Substance: METFORMIN HYDROCHLORIDE
     Dosage: 500 MILLIGRAM, QD
  5. CHLORTHALIDONE [Suspect]
     Active Substance: CHLORTHALIDONE
     Indication: Product used for unknown indication
     Dosage: 50 MILLIGRAM, QD
  6. CHLORTHALIDONE [Suspect]
     Active Substance: CHLORTHALIDONE
     Dosage: 50 MILLIGRAM, QD
     Route: 065
  7. CHLORTHALIDONE [Suspect]
     Active Substance: CHLORTHALIDONE
     Dosage: 50 MILLIGRAM, QD
     Route: 065
  8. CHLORTHALIDONE [Suspect]
     Active Substance: CHLORTHALIDONE
     Dosage: 50 MILLIGRAM, QD
  9. RAMIPRIL [Suspect]
     Active Substance: RAMIPRIL
     Indication: Product used for unknown indication
     Dosage: 10 MILLIGRAM, QD
  10. RAMIPRIL [Suspect]
     Active Substance: RAMIPRIL
     Dosage: 10 MILLIGRAM, QD
     Route: 065
  11. RAMIPRIL [Suspect]
     Active Substance: RAMIPRIL
     Dosage: 10 MILLIGRAM, QD
     Route: 065
  12. RAMIPRIL [Suspect]
     Active Substance: RAMIPRIL
     Dosage: 10 MILLIGRAM, QD

REACTIONS (2)
  - Amyloidosis [Fatal]
  - Hypotension [Unknown]
